FAERS Safety Report 5910033-1 (Version None)
Quarter: 2008Q4

REPORT INFORMATION
  Report Type: 
  Country: None (occurrence: None)
  Receive Date: 20081007
  Receipt Date: 20070719
  Transmission Date: 20090506
  Serious: No
  Sender: FDA-Public Use
  Company Number: US-ASTRAZENECA-2007UW17152

PATIENT
  Sex: Female

DRUGS (2)
  1. ARIMIDEX [Suspect]
     Indication: BREAST CANCER
     Route: 048
     Dates: start: 20050101
  2. ZOCOR [Suspect]
     Dates: start: 20070101, end: 20070401

REACTIONS (2)
  - PAIN IN EXTREMITY [None]
  - SKIN DISORDER [None]
